FAERS Safety Report 13370742 (Version 1)
Quarter: 2017Q1

REPORT INFORMATION
  Report Type: Spontaneous
  Country: JP (occurrence: JP)
  Receive Date: 20170324
  Receipt Date: 20170324
  Transmission Date: 20170429
  Serious: Yes (Other)
  Sender: FDA-Public Use
  Company Number: PHJP2016JP037681

PATIENT
  Age: 13 Year
  Sex: Male

DRUGS (1)
  1. NILOTINIB [Suspect]
     Active Substance: NILOTINIB
     Indication: ACUTE LYMPHOCYTIC LEUKAEMIA
     Dosage: UNK
     Route: 065

REACTIONS (15)
  - Beta haemolytic streptococcal infection [Unknown]
  - Scrotal erythema [Unknown]
  - Scrotal swelling [Unknown]
  - White blood cell count decreased [Unknown]
  - Genital pain [Unknown]
  - Septic shock [Unknown]
  - Scrotal pain [Unknown]
  - Soft tissue infection [Unknown]
  - Pyrexia [Unknown]
  - Scrotal inflammation [Unknown]
  - Skin infection [Unknown]
  - Product use issue [Unknown]
  - Groin pain [Unknown]
  - Sepsis [Unknown]
  - Neutrophil count decreased [Unknown]
